FAERS Safety Report 13516700 (Version 1)
Quarter: 2017Q2

REPORT INFORMATION
  Report Type: Spontaneous
  Country: GB (occurrence: GB)
  Receive Date: 20170505
  Receipt Date: 20170505
  Transmission Date: 20170830
  Serious: Yes (Disabling)
  Sender: FDA-Public Use
  Company Number: GB-ASTRAZENECA-2017SE47418

PATIENT
  Age: 74 Year
  Sex: Male

DRUGS (10)
  1. ISOSORBIDE. [Concomitant]
     Active Substance: ISOSORBIDE
  2. BISOPROLOL [Concomitant]
     Active Substance: BISOPROLOL
  3. GLICLAZIDE [Concomitant]
     Active Substance: GLICLAZIDE
  4. LANSOPRAZOLE. [Concomitant]
     Active Substance: LANSOPRAZOLE
  5. GLYCERYL TRINITRATE [Concomitant]
     Active Substance: NITROGLYCERIN
  6. ASPIRIN. [Concomitant]
     Active Substance: ASPIRIN
  7. EZETIMIBE. [Concomitant]
     Active Substance: EZETIMIBE
  8. DAPAGLIFLOZIN [Suspect]
     Active Substance: DAPAGLIFLOZIN
     Indication: DIABETES MELLITUS INADEQUATE CONTROL
     Route: 048
     Dates: start: 20170403, end: 20170418
  9. QUININE SULFATE. [Concomitant]
     Active Substance: QUININE SULFATE
  10. CANDESARTAN. [Concomitant]
     Active Substance: CANDESARTAN

REACTIONS (2)
  - Gait disturbance [Not Recovered/Not Resolved]
  - Back pain [Not Recovered/Not Resolved]

NARRATIVE: CASE EVENT DATE: 20170405
